FAERS Safety Report 9292592 (Version 1)
Quarter: 2013Q2

REPORT INFORMATION
  Report Type: Spontaneous
  Country: GB (occurrence: GB)
  Receive Date: 20130516
  Receipt Date: 20130516
  Transmission Date: 20140414
  Serious: Yes (Hospitalization, Other)
  Sender: FDA-Public Use
  Company Number: GB-ASTRAZENECA-2013SE33432

PATIENT
  Age: 62 Year
  Sex: Female
  Weight: 70 kg

DRUGS (21)
  1. TICAGRELOR [Suspect]
     Indication: THROMBOSIS IN DEVICE
     Route: 048
     Dates: start: 20130429, end: 20130501
  2. ASPIRIN [Concomitant]
  3. ATORVASTATIN [Concomitant]
  4. BISOPROLOL [Concomitant]
  5. CARBOCYSTEINE [Concomitant]
  6. CLOPIDOGREL [Concomitant]
     Dates: start: 20130413, end: 20130429
  7. EPLERENONE [Concomitant]
  8. ERDOSTEINE [Concomitant]
  9. ESOMEPRAZOLE [Concomitant]
     Dates: end: 20130413
  10. FUROSEMIDE [Concomitant]
  11. GLYCERYL TRINITRATE [Concomitant]
  12. HEPARIN [Concomitant]
  13. HUMALOG MIX 50 [Concomitant]
  14. LACTULOSE [Concomitant]
  15. LIGNOCAINE [Concomitant]
  16. MORPHINE [Concomitant]
  17. QUININE SULPHATE [Concomitant]
  18. RAMIPRIL [Concomitant]
  19. RANITIDINE [Concomitant]
     Dates: start: 20130413
  20. SERETIDE [Concomitant]
  21. SULFASALAZINE [Concomitant]

REACTIONS (8)
  - Liver function test abnormal [Unknown]
  - Ischaemic hepatitis [Not Recovered/Not Resolved]
  - Urine output decreased [Unknown]
  - Abdominal pain [Unknown]
  - Haematemesis [Unknown]
  - Abdominal pain upper [Unknown]
  - Nausea [Unknown]
  - Upper gastrointestinal haemorrhage [Not Recovered/Not Resolved]
